FAERS Safety Report 13377888 (Version 2)
Quarter: 2017Q2

REPORT INFORMATION
  Report Type: Spontaneous
  Country: US (occurrence: US)
  Receive Date: 20170328
  Receipt Date: 20170612
  Transmission Date: 20170830
  Serious: Yes (Other)
  Sender: FDA-Public Use
  Company Number: US-BAYER-2017-058639

PATIENT
  Age: 30 Year
  Sex: Female
  Weight: 90.25 kg

DRUGS (1)
  1. MIRENA [Suspect]
     Active Substance: LEVONORGESTREL
     Dosage: 20 MCG/24HR, CONT
     Route: 015
     Dates: start: 20170327, end: 20170420

REACTIONS (2)
  - Embedded device [Recovered/Resolved]
  - Device difficult to use [Recovered/Resolved]

NARRATIVE: CASE EVENT DATE: 20170327
